FAERS Safety Report 18866714 (Version 1)
Quarter: 2021Q1

REPORT INFORMATION
  Report Type: Spontaneous
  Country: US (occurrence: US)
  Receive Date: 20210209
  Receipt Date: 20210209
  Transmission Date: 20210420
  Serious: Yes (Hospitalization)
  Sender: FDA-Public Use
  Company Number: None

PATIENT
  Age: 36 Year
  Sex: Female
  Weight: 65.7 kg

DRUGS (1)
  1. CISPLATIN. [Suspect]
     Active Substance: CISPLATIN
     Dates: end: 20190619

REACTIONS (5)
  - Hypotension [None]
  - Hypokalaemia [None]
  - Hypophosphataemia [None]
  - Presyncope [None]
  - Dehydration [None]

NARRATIVE: CASE EVENT DATE: 20190623
